FAERS Safety Report 18596070 (Version 2)
Quarter: 2021Q1

REPORT INFORMATION
  Report Type: Spontaneous
  Country: US (occurrence: US)
  Receive Date: 20201209
  Receipt Date: 20210202
  Transmission Date: 20210419
  Serious: No
  Sender: FDA-Public Use
  Company Number: US-PFIZER INC-2020024847

PATIENT
  Age: 71 Year

DRUGS (2)
  1. PREMARIN [Suspect]
     Active Substance: ESTROGENS, CONJUGATED
     Dosage: UNK (QUANTITY FOR 90 DAYS: 90 G)
  2. PREMARIN [Suspect]
     Active Substance: ESTROGENS, CONJUGATED
     Dosage: UNK (STRENGTH: TUBE 0.625 MG/30 GM)

REACTIONS (5)
  - Product prescribing error [Unknown]
  - Malaise [Unknown]
  - Dissociation [Unknown]
  - Hypoacusis [Unknown]
  - Frustration tolerance decreased [Unknown]
